FAERS Safety Report 5653597-8 (Version None)
Quarter: 2008Q1

REPORT INFORMATION
  Report Type: 
  Country: None (occurrence: None)
  Receive Date: 20080131
  Receipt Date: 20071108
  Transmission Date: 20080703
  Serious: No
  Sender: FDA-Public Use
  Company Number: US200711002480

PATIENT
  Age: 59 Year
  Sex: Male

DRUGS (1)
  1. BYETTA [Suspect]
     Dosage: 10 UG, SUBCUTANEOUS ; SUBCUTANEOUS
     Route: 058
     Dates: start: 20070101, end: 20070101

REACTIONS (1)
  - INCORRECT DOSE ADMINISTERED [None]
